FAERS Safety Report 10095674 (Version 4)
Quarter: 2014Q2

REPORT INFORMATION
  Report Type: Spontaneous
  Country: JP (occurrence: JP)
  Receive Date: 20140422
  Receipt Date: 20140523
  Transmission Date: 20141212
  Serious: Yes (Death, Hospitalization)
  Sender: FDA-Public Use
  Company Number: JP-AMGEN-JPNSP2014025527

PATIENT
  Age: 65 Year
  Sex: Male
  Weight: 44 kg

DRUGS (17)
  1. RANMARK [Suspect]
     Indication: METASTASES TO BONE
     Dosage: 120 MG, QD
     Route: 058
     Dates: start: 20140319, end: 20140319
  2. GASMOTIN [Concomitant]
     Indication: NAUSEA
     Dosage: 5 MG, TID
     Route: 048
     Dates: start: 20140319
  3. MAGMITT [Concomitant]
     Indication: CONSTIPATION
     Dosage: 500 MG, TID
     Route: 048
     Dates: start: 20140319
  4. NEXIUM                             /01479302/ [Concomitant]
     Dosage: UNK
     Route: 048
     Dates: start: 20140319
  5. MELOXICAM [Concomitant]
     Indication: PANCREATIC MASS
     Dosage: 10 MG, QD
     Route: 048
     Dates: start: 20140319
  6. LOXOPROFEN [Concomitant]
     Indication: METASTATIC PAIN
     Dosage: 60 MG, TID
     Route: 048
     Dates: start: 20140319
  7. REBAMIPIDE [Concomitant]
     Indication: GASTRITIS
     Dosage: 100 MG, TID
     Route: 048
     Dates: start: 20140319
  8. SENNOSIDE                          /00571901/ [Concomitant]
     Indication: CONSTIPATION
     Dosage: 24 MG, QD
     Route: 048
     Dates: start: 20140319
  9. DECADRON                           /00016001/ [Concomitant]
     Dosage: 2 MG, BID
     Route: 048
     Dates: start: 20140319
  10. AFINITOR [Concomitant]
     Dosage: 10 MG, QD
     Route: 065
     Dates: start: 20140319
  11. ALFAROL [Concomitant]
     Indication: PROPHYLAXIS
     Dosage: 0.25 MUG, TID
     Route: 048
     Dates: start: 20140319
  12. PROMAC                             /01312301/ [Concomitant]
     Dosage: UNK
     Route: 065
  13. PURSENNID                          /00142207/ [Concomitant]
     Dosage: UNK
     Route: 065
  14. ASPARA-CA [Concomitant]
     Indication: PROPHYLAXIS
     Dosage: 200 MG, TID
     Route: 048
     Dates: start: 20140319
  15. LOXONIN [Concomitant]
  16. MUCOSTA [Concomitant]
  17. OCTREOTIDE ACETATE [Concomitant]
     Indication: PANCREATIC MASS
     Dosage: 30 MG, QD
     Route: 030
     Dates: start: 20140319, end: 20140319

REACTIONS (2)
  - Hypocalcaemia [Recovering/Resolving]
  - Shock haemorrhagic [Fatal]
